FAERS Safety Report 15990881 (Version 1)
Quarter: 2019Q1

REPORT INFORMATION
  Report Type: Spontaneous
  Country: US (occurrence: US)
  Receive Date: 20190125
  Receipt Date: 20190125
  Transmission Date: 20190418
  Serious: Yes (Life-Threatening, Other)
  Sender: FDA-Public Use
  Company Number: None

PATIENT
  Age: 67 Year
  Sex: Female
  Weight: 88 kg

DRUGS (1)
  1. CINVANTI [Suspect]
     Active Substance: APREPITANT
     Indication: LUNG NEOPLASM MALIGNANT
     Route: 042
     Dates: start: 20190124

REACTIONS (7)
  - Heart rate increased [None]
  - Erythema [None]
  - Feeling hot [None]
  - Blood pressure immeasurable [None]
  - Hyperhidrosis [None]
  - Ear pain [None]
  - Oropharyngeal pain [None]

NARRATIVE: CASE EVENT DATE: 20190124
